FAERS Safety Report 9765737 (Version 1)
Quarter: 2013Q4

REPORT INFORMATION
  Report Type: Spontaneous
  Country: US (occurrence: US)
  Receive Date: 20131217
  Receipt Date: 20131217
  Transmission Date: 20140711
  Serious: No
  Sender: FDA-Public Use
  Company Number: US-BIOGENIDEC-2013BI114971

PATIENT
  Sex: Female

DRUGS (9)
  1. TECFIDERA [Suspect]
     Indication: MULTIPLE SCLEROSIS
     Route: 048
     Dates: start: 20130910
  2. DORZOLAMIDE [Concomitant]
  3. ALPHAGAN [Concomitant]
  4. LANTANOPROST [Concomitant]
  5. AZOPT [Concomitant]
  6. EDARBI [Concomitant]
  7. CEPHALEXIN [Concomitant]
  8. OFLOXACIN [Concomitant]
  9. LIDODERM [Concomitant]

REACTIONS (2)
  - Flatulence [Unknown]
  - Diarrhoea [Recovered/Resolved]
